FAERS Safety Report 19712859 (Version 8)
Quarter: 2024Q2

REPORT INFORMATION
  Report Type: Report from Study
  Country: GT (occurrence: GT)
  Receive Date: 20210817
  Receipt Date: 20240423
  Transmission Date: 20240716
  Serious: Yes (Hospitalization)
  Sender: FDA-Public Use
  Company Number: NVSC2020GT191428

PATIENT
  Age: 40 Year
  Sex: Female

DRUGS (11)
  1. SECUKINUMAB [Suspect]
     Active Substance: SECUKINUMAB
     Indication: Ankylosing spondylitis
     Dosage: 150 MG, QMO (BENEATH THE SKIN USUALLY VIA INJECTION)
     Route: 058
     Dates: start: 20200601
  2. SECUKINUMAB [Suspect]
     Active Substance: SECUKINUMAB
     Dosage: 150 MG, QMO
     Route: 058
     Dates: start: 2020
  3. SECUKINUMAB [Suspect]
     Active Substance: SECUKINUMAB
     Dosage: 150 MG, QMO (BENEATH THE SKIN USUALLY VIA INJECTION)
     Route: 058
  4. SECUKINUMAB [Suspect]
     Active Substance: SECUKINUMAB
     Dosage: 150 MG, QMO (BENEATH THE SKIN USUALLY VIA INJECTION)
     Route: 058
  5. SECUKINUMAB [Suspect]
     Active Substance: SECUKINUMAB
     Dosage: 150 MG, QMO
     Route: 058
  6. SECUKINUMAB [Suspect]
     Active Substance: SECUKINUMAB
     Dosage: 150 MG
     Route: 065
  7. SECUKINUMAB [Suspect]
     Active Substance: SECUKINUMAB
     Dosage: 150 MG, QMO
     Route: 058
     Dates: end: 202212
  8. NEXIUM [Concomitant]
     Active Substance: ESOMEPRAZOLE MAGNESIUM
     Indication: Irritable bowel syndrome
     Dosage: UNK, QD IN THE MORNING
     Route: 065
  9. NEXIUM [Concomitant]
     Active Substance: ESOMEPRAZOLE MAGNESIUM
     Indication: Duodenitis
  10. NEXIUM [Concomitant]
     Active Substance: ESOMEPRAZOLE MAGNESIUM
     Indication: Gastritis
  11. SENNAX PLUS [Concomitant]
     Indication: Constipation
     Dosage: UNK
     Route: 065

REACTIONS (34)
  - Sepsis [Recovered/Resolved with Sequelae]
  - Escherichia infection [Unknown]
  - Foot fracture [Unknown]
  - Ear infection [Unknown]
  - Depressed mood [Unknown]
  - Headache [Unknown]
  - Pain in jaw [Unknown]
  - Pain [Unknown]
  - Hernia [Unknown]
  - Inflammation [Unknown]
  - Influenza [Unknown]
  - Abdominal discomfort [Unknown]
  - Hypersensitivity [Unknown]
  - Pharyngitis [Unknown]
  - Feeling abnormal [Unknown]
  - COVID-19 [Recovered/Resolved]
  - Cough [Unknown]
  - Oropharyngeal pain [Unknown]
  - Arthralgia [Not Recovered/Not Resolved]
  - Fatigue [Unknown]
  - Spinal pain [Not Recovered/Not Resolved]
  - Back pain [Recovered/Resolved]
  - Pain in extremity [Not Recovered/Not Resolved]
  - Malaise [Unknown]
  - Depression [Unknown]
  - Migraine [Unknown]
  - COVID-19 [Not Recovered/Not Resolved]
  - Respiratory tract infection [Unknown]
  - Decreased immune responsiveness [Unknown]
  - Back pain [Recovered/Resolved]
  - Eye infection [Unknown]
  - Skin disorder [Unknown]
  - Illness [Unknown]
  - Drug ineffective [Not Recovered/Not Resolved]

NARRATIVE: CASE EVENT DATE: 20200630
